FAERS Safety Report 4428479-X (Version None)
Quarter: 2004Q3

REPORT INFORMATION
  Report Type: 
  Country: None (occurrence: None)
  Receive Date: 20040813
  Receipt Date: 20040809
  Transmission Date: 20050211
  Serious: Yes (Death, Life-Threatening)
  Sender: FDA-Public Use
  Company Number: 2004SE04506

PATIENT
  Age: 1 Day

DRUGS (3)
  1. BLOPRESS [Suspect]
     Indication: NEPHROSCLEROSIS
  2. FERROUS CITRATE [Concomitant]
  3. DIPYRIDAMOLE [Concomitant]

REACTIONS (7)
  - DRUG EXPOSURE DURING PREGNANCY [None]
  - NEONATAL DISORDER [None]
  - PNEUMOTHORAX [None]
  - PULMONARY HYPOPLASIA [None]
  - RESPIRATORY DISORDER NEONATAL [None]
  - SKULL MALFORMATION [None]
  - TERATOGENICITY [None]
